FAERS Safety Report 15813844 (Version 1)
Quarter: 2019Q1

REPORT INFORMATION
  Report Type: Spontaneous
  Country: NL (occurrence: NL)
  Receive Date: 20190111
  Receipt Date: 20190111
  Transmission Date: 20190417
  Serious: Yes (Hospitalization)
  Sender: FDA-Public Use
  Company Number: NL-MYLANLABS-2019M1002352

PATIENT
  Age: 33 Year
  Sex: Male

DRUGS (9)
  1. ENOXIMONE [Suspect]
     Active Substance: ENOXIMONE
     Indication: CARDIOGENIC SHOCK
     Route: 065
  2. MIDAZOLAM [Concomitant]
     Active Substance: MIDAZOLAM HYDROCHLORIDE
     Indication: PRODUCT USED FOR UNKNOWN INDICATION
     Dosage: 2 MG
     Route: 065
  3. EPINEPHRINE. [Suspect]
     Active Substance: EPINEPHRINE
     Indication: CARDIOGENIC SHOCK
     Route: 042
  4. GLUCOSE [Suspect]
     Active Substance: DEXTROSE
     Indication: CARDIOGENIC SHOCK
     Route: 065
  5. SODIUM CHLORIDE. [Suspect]
     Active Substance: SODIUM CHLORIDE
     Indication: CARDIOGENIC SHOCK
     Route: 065
  6. CEFUROXIME. [Suspect]
     Active Substance: CEFUROXIME
     Indication: SEPTIC SHOCK
     Route: 065
  7. ROCURONIUM [Concomitant]
     Active Substance: ROCURONIUM BROMIDE
     Indication: PRODUCT USED FOR UNKNOWN INDICATION
     Dosage: 100 MG
     Route: 065
  8. CIPROFLOXACIN. [Suspect]
     Active Substance: CIPROFLOXACIN
     Indication: SEPTIC SHOCK
     Route: 065
  9. NOREPINEPHRINE. [Suspect]
     Active Substance: NOREPINEPHRINE
     Indication: CARDIOGENIC SHOCK
     Route: 065

REACTIONS (1)
  - Drug ineffective [Unknown]
